FAERS Safety Report 5059473-6 (Version None)
Quarter: 2006Q3

REPORT INFORMATION
  Report Type: 
  Country: None (occurrence: None)
  Receive Date: 20060719
  Receipt Date: 20060706
  Transmission Date: 20061208
  Serious: Yes (Hospitalization)
  Sender: FDA-Public Use
  Company Number: 146452USA

PATIENT
  Age: 73 Year
  Sex: Female

DRUGS (2)
  1. PHENYLEPHRINE [Suspect]
     Indication: SUBARACHNOID HAEMORRHAGE
  2. PHENYLEPHRINE [Suspect]
     Indication: VASOSPASM

REACTIONS (1)
  - REVERSIBLE POSTERIOR LEUKOENCEPHALOPATHY SYNDROME [None]
